FAERS Safety Report 20846665 (Version 14)
Quarter: 2022Q4

REPORT INFORMATION
  Report Type: Spontaneous
  Country: PT (occurrence: PT)
  Receive Date: 20220519
  Receipt Date: 20221213
  Transmission Date: 20230112
  Serious: Yes (Life-Threatening, Hospitalization, Other)
  Sender: FDA-Public Use
  Company Number: PT-MYLANLABS-2022M1033537

PATIENT
  Age: 21 Year
  Sex: Female

DRUGS (35)
  1. DESLORATADINE [Suspect]
     Active Substance: DESLORATADINE
     Indication: Haematemesis
     Dosage: UNK
     Route: 065
  2. DESLORATADINE [Suspect]
     Active Substance: DESLORATADINE
     Indication: Vomiting
     Dosage: UNK (EXCEEDED THE RECOMMENDED DOSE )
     Route: 048
  3. DESLORATADINE [Suspect]
     Active Substance: DESLORATADINE
     Indication: Abdominal pain upper
  4. DESLORATADINE [Suspect]
     Active Substance: DESLORATADINE
     Indication: Pyrexia
  5. IBUPROFEN [Suspect]
     Active Substance: IBUPROFEN
     Indication: Haematemesis
     Dosage: HIGH DOSE
     Route: 048
  6. IBUPROFEN [Suspect]
     Active Substance: IBUPROFEN
     Indication: Vomiting
     Dosage: UNK
     Route: 048
  7. IBUPROFEN [Suspect]
     Active Substance: IBUPROFEN
     Indication: Pyrexia
     Dosage: UNK
     Route: 065
  8. IBUPROFEN [Suspect]
     Active Substance: IBUPROFEN
     Indication: Abdominal pain upper
     Dosage: UNK
     Route: 065
  9. IBUPROFEN [Suspect]
     Active Substance: IBUPROFEN
     Indication: Abdominal pain
     Dosage: UNK
     Route: 065
  10. IBUPROFEN [Suspect]
     Active Substance: IBUPROFEN
     Dosage: UNK
     Route: 065
  11. METAMIZOLE SODIUM [Suspect]
     Active Substance: METAMIZOLE SODIUM
     Indication: Abdominal pain upper
     Dosage: UNK
     Route: 065
  12. METAMIZOLE SODIUM [Suspect]
     Active Substance: METAMIZOLE SODIUM
     Indication: Vomiting
  13. METAMIZOLE SODIUM [Suspect]
     Active Substance: METAMIZOLE SODIUM
     Indication: Pyrexia
  14. METAMIZOLE SODIUM [Suspect]
     Active Substance: METAMIZOLE SODIUM
     Indication: Abdominal pain
  15. METAMIZOLE MAGNESIUM [Suspect]
     Active Substance: METAMIZOLE MAGNESIUM
     Indication: Abdominal pain upper
     Dosage: UNK(EXCEEDED THE RECOMMENDED DOSE )
     Route: 048
  16. METAMIZOLE MAGNESIUM [Suspect]
     Active Substance: METAMIZOLE MAGNESIUM
     Indication: Pyrexia
     Dosage: UNK
     Route: 065
  17. METAMIZOLE MAGNESIUM [Suspect]
     Active Substance: METAMIZOLE MAGNESIUM
     Indication: Vomiting
     Dosage: UNK
     Route: 065
  18. METAMIZOLE [Interacting]
     Active Substance: METAMIZOLE
     Indication: Haematemesis
     Dosage: UNK (EXCEEDED THE RECOMMENDED DOSE )
     Route: 048
  19. METAMIZOLE [Interacting]
     Active Substance: METAMIZOLE
     Indication: Abdominal pain
  20. METAMIZOLE [Interacting]
     Active Substance: METAMIZOLE
     Indication: Abdominal pain upper
  21. METAMIZOLE [Interacting]
     Active Substance: METAMIZOLE
     Indication: Vomiting
  22. METAMIZOLE [Interacting]
     Active Substance: METAMIZOLE
     Indication: Pyrexia
  23. ONDANSETRON [Suspect]
     Active Substance: ONDANSETRON
     Indication: Haematemesis
     Dosage: UNK
     Route: 065
  24. ONDANSETRON [Suspect]
     Active Substance: ONDANSETRON
     Dosage: UNK
     Route: 065
  25. ONDANSETRON [Suspect]
     Active Substance: ONDANSETRON
     Dosage: UNK
     Route: 065
  26. ONDANSETRON [Suspect]
     Active Substance: ONDANSETRON
     Dosage: UNK
     Route: 065
  27. ONDANSETRON [Suspect]
     Active Substance: ONDANSETRON
     Dosage: UNK
     Route: 065
  28. ONDANSETRON [Suspect]
     Active Substance: ONDANSETRON
     Dosage: UNK
     Route: 065
  29. DESLORATADINE [Concomitant]
     Active Substance: DESLORATADINE
     Indication: Abdominal pain upper
     Dosage: UNK
     Route: 065
  30. DESLORATADINE [Concomitant]
     Active Substance: DESLORATADINE
     Indication: Vomiting
     Dosage: UNK
     Route: 065
  31. DESLORATADINE [Concomitant]
     Active Substance: DESLORATADINE
     Indication: Pyrexia
  32. PANTOPRAZOLE [Suspect]
     Active Substance: PANTOPRAZOLE
     Indication: Haematemesis
     Dosage: UNK
     Route: 065
  33. METAMIZOL [Concomitant]
     Active Substance: METAMIZOLE SODIUM
     Indication: Product used for unknown indication
     Dosage: UNK
     Route: 065
  34. ONDANSETRON [Concomitant]
     Active Substance: ONDANSETRON
     Indication: Haematemesis
     Dosage: UNK
     Route: 065
  35. PANTOPRAZOLE [Concomitant]
     Active Substance: PANTOPRAZOLE
     Indication: Haematemesis
     Dosage: UNK
     Route: 065

REACTIONS (21)
  - Gastric ulcer [Recovered/Resolved]
  - Haemorrhagic erosive gastritis [Unknown]
  - Gastrointestinal haemorrhage [Recovered/Resolved]
  - Shock haemorrhagic [Recovered/Resolved]
  - Haemorrhage [Recovered/Resolved]
  - Haematemesis [Recovered/Resolved]
  - Gastric disorder [Recovered/Resolved]
  - Overdose [Unknown]
  - Intentional product use issue [Unknown]
  - Prescription drug used without a prescription [Unknown]
  - Intentional product misuse [Unknown]
  - Self-medication [Unknown]
  - Gastritis erosive [Unknown]
  - Abdominal pain upper [Recovered/Resolved]
  - Vomiting [Recovered/Resolved]
  - Pyrexia [Recovered/Resolved]
  - Gastritis haemorrhagic [Recovering/Resolving]
  - Gastrointestinal erosion [Recovered/Resolved]
  - Off label use [Unknown]
  - Intentional overdose [Unknown]
  - Gastric haemorrhage [Recovering/Resolving]
